FAERS Safety Report 15059756 (Version 2)
Quarter: 2019Q4

REPORT INFORMATION
  Report Type: Spontaneous
  Country: US (occurrence: US)
  Receive Date: 20180625
  Receipt Date: 20191119
  Transmission Date: 20200122
  Serious: Yes (Other)
  Sender: FDA-Public Use
  Company Number: US-SA-2018SA090236

PATIENT
  Age: 52 Year
  Sex: Female
  Weight: 91 kg

DRUGS (6)
  1. DOCETAXEL. [Suspect]
     Active Substance: DOCETAXEL
     Indication: BREAST CANCER FEMALE
     Dosage: 75 MG, Q3W
     Route: 042
     Dates: start: 20120621, end: 20120621
  2. ACICLOVIR [Concomitant]
     Active Substance: ACYCLOVIR
     Dosage: UNK UNK,UNK
     Route: 065
     Dates: start: 1981
  3. DOCETAXEL. [Suspect]
     Active Substance: DOCETAXEL
     Dosage: 75 MG, Q3W
     Route: 042
     Dates: start: 20121004, end: 20121004
  4. CLONIDINE. [Concomitant]
     Active Substance: CLONIDINE
     Dosage: UNK UNK,UNK
     Route: 065
     Dates: start: 1995
  5. LOVASTATIN. [Concomitant]
     Active Substance: LOVASTATIN
     Dosage: UNK UNK,UNK
     Route: 065
     Dates: start: 1995
  6. NEOSAR [Concomitant]
     Active Substance: CYCLOPHOSPHAMIDE
     Indication: BREAST CANCER FEMALE
     Dosage: UNK UNK, UNK

REACTIONS (1)
  - Alopecia [Not Recovered/Not Resolved]

NARRATIVE: CASE EVENT DATE: 201304
